FAERS Safety Report 13592716 (Version 2)
Quarter: 2017Q4

REPORT INFORMATION
  Report Type: Report from Study
  Country: IL (occurrence: IL)
  Receive Date: 20170530
  Receipt Date: 20171226
  Transmission Date: 20180320
  Serious: Yes (Death, Hospitalization)
  Sender: FDA-Public Use
  Company Number: PHHY2017IL076184

PATIENT
  Age: 33 Year
  Sex: Male

DRUGS (1)
  1. EXJADE [Suspect]
     Active Substance: DEFERASIROX
     Indication: THALASSAEMIA
     Dosage: 2250 MG, QD
     Route: 048
     Dates: start: 20110101, end: 201705

REACTIONS (2)
  - Hepatic cancer [Unknown]
  - Death [Fatal]

NARRATIVE: CASE EVENT DATE: 20171216
